FAERS Safety Report 6667508-X (Version None)
Quarter: 2010Q2

REPORT INFORMATION
  Report Type: 
  Country: None (occurrence: None)
  Receive Date: 20100405
  Receipt Date: 20100325
  Transmission Date: 20101027
  Serious: Yes (Other)
  Sender: FDA-Public Use
  Company Number: ES-CELGENEUS-144-20785-10032334

PATIENT

DRUGS (3)
  1. THALIDOMIDE [Suspect]
     Route: 048
  2. PEGINTERFERON [Suspect]
     Route: 065
  3. RIBAVIRIN [Suspect]
     Dosage: 1000-1200MG
     Route: 065

REACTIONS (2)
  - DELIRIUM [None]
  - SYNCOPE [None]
